FAERS Safety Report 5247054-0 (Version None)
Quarter: 2007Q1

REPORT INFORMATION
  Report Type: 
  Country: None (occurrence: None)
  Receive Date: 20070220
  Receipt Date: 20070207
  Transmission Date: 20070707
  Serious: Yes (Hospitalization)
  Sender: FDA-Public Use
  Company Number: ENC200700017

PATIENT
  Age: 72 Year
  Sex: Female

DRUGS (2)
  1. ARGATROBAN [Suspect]
     Indication: HEPARIN-INDUCED THROMBOCYTOPENIA
     Dosage: UNK, UNK, INTRAVENOUS
     Route: 042
  2. HEPARIN [Suspect]
     Indication: DIALYSIS
     Dates: end: 20070208

REACTIONS (1)
  - PLATELET COUNT DECREASED [None]
